FAERS Safety Report 14265112 (Version 2)
Quarter: 2017Q4

REPORT INFORMATION
  Report Type: Spontaneous
  Country: GB (occurrence: GB)
  Receive Date: 20171208
  Receipt Date: 20171222
  Transmission Date: 20180321
  Serious: Yes (Hospitalization, Other)
  Sender: FDA-Public Use
  Company Number: GB-SA-2017SA243513

PATIENT
  Age: 25 Year
  Sex: Female

DRUGS (5)
  1. NOVORAPID [Suspect]
     Active Substance: INSULIN ASPART
     Indication: TYPE 1 DIABETES MELLITUS
     Dosage: DOSE: 19 U, QD DOSE:19 UNIT(S)
     Route: 058
     Dates: start: 2000
  2. NOVORAPID [Suspect]
     Active Substance: INSULIN ASPART
     Indication: TYPE 1 DIABETES MELLITUS
     Dosage: DOSE: 19 U, QD DOSE:19 UNIT(S)
     Route: 058
  3. FOLIC ACID. [Concomitant]
     Active Substance: FOLIC ACID
     Route: 065
  4. LANTUS [Suspect]
     Active Substance: INSULIN GLARGINE
     Indication: TYPE 1 DIABETES MELLITUS
     Dosage: DOSE: 45.0 U, QD DOSE:45 UNIT(S)
     Route: 058
     Dates: start: 2000
  5. NOVORAPID [Suspect]
     Active Substance: INSULIN ASPART
     Indication: TYPE 1 DIABETES MELLITUS
     Dosage: DOSE: 20 U, QD DOSE:20 UNIT(S)
     Route: 058

REACTIONS (5)
  - Blood ketone body present [Recovered/Resolved]
  - Foetal renal imaging abnormal [Recovering/Resolving]
  - Hypoglycaemia [Recovered/Resolved]
  - Vacuum extractor delivery [Recovered/Resolved]
  - Exposure during pregnancy [Unknown]

NARRATIVE: CASE EVENT DATE: 20150403
